FAERS Safety Report 17402163 (Version 3)
Quarter: 2020Q3

REPORT INFORMATION
  Report Type: Spontaneous
  Country: US (occurrence: US)
  Receive Date: 20200211
  Receipt Date: 20200911
  Transmission Date: 20201102
  Serious: No
  Sender: FDA-Public Use
  Company Number: US-PFIZER INC-2020056531

PATIENT
  Age: 68 Year
  Sex: Male
  Weight: 78.93 kg

DRUGS (1)
  1. ALPRAZOLAM. [Suspect]
     Active Substance: ALPRAZOLAM
     Indication: ANXIETY
     Dosage: 1 MG, 1X/DAY (1MG AT NIGHT)

REACTIONS (2)
  - Chest pain [Not Recovered/Not Resolved]
  - Dizziness [Unknown]
